FAERS Safety Report 18588238 (Version 1)
Quarter: 2020Q4

REPORT INFORMATION
  Report Type: Spontaneous
  Country: US (occurrence: US)
  Receive Date: 20201207
  Receipt Date: 20201207
  Transmission Date: 20210114
  Serious: Yes (Other)
  Sender: FDA-Public Use
  Company Number: US-PFIZER INC-2020479644

PATIENT
  Age: 65 Year
  Sex: Female
  Weight: 59.87 kg

DRUGS (2)
  1. PREMARIN [Suspect]
     Active Substance: ESTROGENS, CONJUGATED
     Indication: HORMONE REPLACEMENT THERAPY
     Dosage: 0.625 MG, DAILY
     Route: 048
  2. PREMARIN [Suspect]
     Active Substance: ESTROGENS, CONJUGATED
     Dosage: UNK (CUTTING TABLETS IN HALF DAILY, WHEN SHE GOT LOW, TAKE HALF OF A TABLET EVERY OTHER DAY)
     Route: 048
     Dates: start: 2019

REACTIONS (6)
  - Drug dependence [Unknown]
  - Insomnia [Unknown]
  - Mental disorder [Unknown]
  - Hot flush [Unknown]
  - Malaise [Unknown]
  - Intentional product misuse [Unknown]

NARRATIVE: CASE EVENT DATE: 2019
